FAERS Safety Report 18874995 (Version 1)
Quarter: 2021Q1

REPORT INFORMATION
  Report Type: Spontaneous
  Country: JP (occurrence: JP)
  Receive Date: 20210210
  Receipt Date: 20210210
  Transmission Date: 20210420
  Serious: Yes (Other)
  Sender: FDA-Public Use
  Company Number: NVSC2020JP281182

PATIENT
  Age: 63 Year
  Sex: Female

DRUGS (2)
  1. TAFINLAR [Suspect]
     Active Substance: DABRAFENIB MESYLATE
     Indication: SUPERFICIAL SPREADING MELANOMA STAGE III
     Dosage: UNK
     Route: 048
  2. MEKINIST [Suspect]
     Active Substance: TRAMETINIB DIMETHYL SULFOXIDE
     Indication: SUPERFICIAL SPREADING MELANOMA STAGE III
     Dosage: UNK
     Route: 048

REACTIONS (5)
  - Pyrexia [Unknown]
  - Therapeutic response decreased [Unknown]
  - Gamma-glutamyltransferase increased [Unknown]
  - Metastases to skin [Unknown]
  - Blood alkaline phosphatase increased [Unknown]
